FAERS Safety Report 8371206-4 (Version None)
Quarter: 2012Q2

REPORT INFORMATION
  Report Type: 
  Country: None (occurrence: None)
  Receive Date: 20120518
  Receipt Date: 20120511
  Transmission Date: 20120825
  Serious: Yes (Other)
  Sender: FDA-Public Use
  Company Number: ES-ABBOTT-12P-144-0934377-00

PATIENT
  Age: 67 Year
  Sex: Male
  Weight: 68 kg

DRUGS (2)
  1. SAVEPROST [Concomitant]
     Indication: PROSTATE CANCER
     Route: 048
     Dates: start: 20120401
  2. SIX-MONTH-PROCRIN [Suspect]
     Indication: PROSTATE CANCER
     Route: 058
     Dates: start: 20120401

REACTIONS (2)
  - INJECTION SITE SWELLING [None]
  - INJECTION SITE INFLAMMATION [None]
